FAERS Safety Report 21612128 (Version 3)
Quarter: 2023Q1

REPORT INFORMATION
  Report Type: Report from Study
  Country: US (occurrence: US)
  Receive Date: 20221118
  Receipt Date: 20230109
  Transmission Date: 20230418
  Serious: Yes (Other)
  Sender: FDA-Public Use
  Company Number: US-ABBVIE-22K-163-4458961-00

PATIENT
  Age: 63 Year
  Sex: Female
  Weight: 59 kg

DRUGS (15)
  1. HUMIRA [Suspect]
     Active Substance: ADALIMUMAB
     Indication: Rheumatoid arthritis
     Dosage: STRENGTH: 40 MILLIGRAM
     Route: 058
     Dates: start: 20200107, end: 202203
  2. HUMIRA [Suspect]
     Active Substance: ADALIMUMAB
     Dosage: STRENGTH: 40 MILLIGRAM
     Route: 058
     Dates: start: 202203, end: 20220623
  3. HUMIRA [Suspect]
     Active Substance: ADALIMUMAB
     Dosage: STRENGTH: 40 MILLIGRAM
     Route: 058
     Dates: start: 20220818
  4. PFIZER-BIONTECH COVID-19 VACCINE [Concomitant]
     Active Substance: TOZINAMERAN
     Indication: COVID-19 immunisation
     Dosage: ONE IN ONCE
     Route: 030
     Dates: start: 20220418, end: 20220418
  5. PFIZER-BIONTECH COVID-19 VACCINE [Concomitant]
     Active Substance: TOZINAMERAN
     Indication: COVID-19 immunisation
     Dosage: ONE IN ONCE
     Route: 030
     Dates: start: 20210502, end: 20210502
  6. PFIZER-BIONTECH COVID-19 VACCINE [Concomitant]
     Active Substance: TOZINAMERAN
     Indication: COVID-19 immunisation
     Dosage: ONE IN ONCE
     Route: 030
     Dates: start: 20210327, end: 20210327
  7. PFIZER-BIONTECH COVID-19 VACCINE [Concomitant]
     Active Substance: TOZINAMERAN
     Indication: COVID-19 immunisation
     Dosage: ONE IN ONCE
     Route: 030
     Dates: start: 20211103, end: 20211103
  8. NAPROXEN [Concomitant]
     Active Substance: NAPROXEN
     Indication: Pain
  9. PREDNISONE [Concomitant]
     Active Substance: PREDNISONE
     Indication: Rheumatoid arthritis
  10. METHOTREXATE [Concomitant]
     Active Substance: METHOTREXATE
     Indication: Rheumatoid arthritis
  11. LISINOPRIL AND HYDROCHLOROTHIAZIDE [Concomitant]
     Active Substance: HYDROCHLOROTHIAZIDE\LISINOPRIL
     Indication: Hypertension
  12. WELLBUTRIN [Concomitant]
     Active Substance: BUPROPION HYDROCHLORIDE
     Indication: Depression
  13. LEXAPRO [Concomitant]
     Active Substance: ESCITALOPRAM OXALATE
     Indication: Depression
     Route: 065
  14. RALOXIFENE [Concomitant]
     Active Substance: RALOXIFENE
     Indication: Osteopenia
  15. FOLIC ACID [Concomitant]
     Active Substance: FOLIC ACID
     Indication: Product used for unknown indication

REACTIONS (9)
  - Joint range of motion decreased [Not Recovered/Not Resolved]
  - Dysgraphia [Not Recovered/Not Resolved]
  - Pruritus [Recovered/Resolved]
  - Peripheral swelling [Recovering/Resolving]
  - Pain [Recovering/Resolving]
  - Herpes zoster [Recovering/Resolving]
  - Neuralgia [Recovering/Resolving]
  - Rheumatoid arthritis [Recovered/Resolved]
  - Rash [Recovered/Resolved]

NARRATIVE: CASE EVENT DATE: 20220401
